FAERS Safety Report 9525019 (Version 3)
Quarter: 2013Q4

REPORT INFORMATION
  Report Type: Report from Study
  Country: NL (occurrence: NL)
  Receive Date: 20130916
  Receipt Date: 20131024
  Transmission Date: 20140711
  Serious: Yes (Hospitalization)
  Sender: FDA-Public Use
  Company Number: NL-IPSEN BIOPHARMACEUTICALS, INC.-2013-3113

PATIENT
  Age: 54 Year
  Sex: Female
  Weight: 70 kg

DRUGS (2)
  1. SOMATULINE AUTOSOLUTION 120MG [Suspect]
     Indication: CONGENITAL CYSTIC KIDNEY DISEASE
     Dosage: NOT REPORTED
     Route: 065
  2. ESOMEPRAZOL [Concomitant]
     Indication: PRODUCT USED FOR UNKNOWN INDICATION
     Dosage: NOT REPORTED
     Route: 048

REACTIONS (1)
  - Cyst rupture [Recovered/Resolved]
